FAERS Safety Report 12073251 (Version 5)
Quarter: 2017Q1

REPORT INFORMATION
  Report Type: Spontaneous
  Country: US (occurrence: US)
  Receive Date: 20160212
  Receipt Date: 20170118
  Transmission Date: 20170428
  Serious: Yes (Other)
  Sender: FDA-Public Use
  Company Number: US-PFIZER INC-2016075459

PATIENT
  Age: 58 Year
  Sex: Female
  Weight: 56.69 kg

DRUGS (27)
  1. LYRICA [Suspect]
     Active Substance: PREGABALIN
     Indication: HERPES ZOSTER
     Dosage: 75 MG, FOUR CAPSULES 2X/DAY
     Route: 048
     Dates: start: 201612
  2. LYRICA [Suspect]
     Active Substance: PREGABALIN
     Indication: DIABETIC NEUROPATHY
  3. OMEPRAZOLE. [Concomitant]
     Active Substance: OMEPRAZOLE
     Dosage: 20 MG, 2X/DAY
     Route: 048
  4. PREDNISONE. [Concomitant]
     Active Substance: PREDNISONE
     Dosage: 10 MG, UNK
     Route: 048
  5. LYRICA [Suspect]
     Active Substance: PREGABALIN
     Indication: POST HERPETIC NEURALGIA
     Dosage: 300 MG, 2X/DAY
     Route: 048
     Dates: start: 200705, end: 201612
  6. EFFEXOR XR [Concomitant]
     Active Substance: VENLAFAXINE HYDROCHLORIDE
     Indication: DEPRESSION
     Dosage: 75 MG, 1X/DAY
     Route: 048
     Dates: start: 20160203
  7. PREDNISONE. [Concomitant]
     Active Substance: PREDNISONE
     Dosage: 40 MG, UNK
     Route: 048
  8. CALCIUM [Concomitant]
     Active Substance: CALCIUM
     Dosage: 600 MG, 2X/DAY
     Route: 048
  9. LIDODERM [Concomitant]
     Active Substance: LIDOCAINE
     Dosage: 5% 1 PATCH(S) APPLY ON THE SKIN EVERY 12 HOURS AROUND THE CLOCK
     Route: 062
     Dates: start: 200710
  10. OXYCODONE [Concomitant]
     Active Substance: OXYCODONE
     Dosage: 5 MG, 3X/DAY
     Route: 048
  11. XANAX [Concomitant]
     Active Substance: ALPRAZOLAM
     Dosage: 0.6/HALF TABLET(S) AS DIRECTED
     Route: 048
  12. HYDROCODONE BITARTRATE AND ACETAMINOPHEN [Concomitant]
     Active Substance: ACETAMINOPHEN\HYDROCODONE BITARTRATE
     Dosage: 1 DF, DAILY (HYDROCODONE 7.5 MG ACETAMINOPHEN 325 MG)
     Route: 048
  13. FISH OIL [Concomitant]
     Active Substance: FISH OIL
     Dosage: 1 DF, DAILY
     Route: 048
  14. BACLOFEN. [Concomitant]
     Active Substance: BACLOFEN
     Indication: POST HERPETIC NEURALGIA
     Dosage: 20 MG, 4X/DAY
     Route: 048
     Dates: start: 200710
  15. LEVOTHYROXINE. [Concomitant]
     Active Substance: LEVOTHYROXINE
     Indication: HYPOTHYROIDISM
     Dosage: 100 UG, 1X/DAY
     Route: 048
     Dates: start: 20080408
  16. VENLAFAXINE [Concomitant]
     Active Substance: VENLAFAXINE HYDROCHLORIDE
     Dosage: 75 MG, DAILY
     Route: 048
  17. PRIMIDONE. [Concomitant]
     Active Substance: PRIMIDONE
     Dosage: 100 MG, 2X/DAY
     Route: 048
  18. ELIQUIS [Concomitant]
     Active Substance: APIXABAN
     Dosage: 2.5 MG, 2X/DAY
     Route: 048
  19. PREDNISONE. [Concomitant]
     Active Substance: PREDNISONE
     Dosage: 20 MG, UNK
     Route: 048
  20. POTASSIUM 99 [Concomitant]
     Dosage: 99 MG, DAILY
     Route: 048
  21. FLUOCINOLONE [Concomitant]
     Active Substance: FLUOCINOLONE
     Dosage: 1 APPLICATION(S) APPLY ON THE SKIN AS DIRECTED
     Route: 061
  22. NEURONTIN [Suspect]
     Active Substance: GABAPENTIN
     Indication: POST HERPETIC NEURALGIA
     Dosage: UNK
  23. CLONAZEPAM. [Concomitant]
     Active Substance: CLONAZEPAM
     Indication: ANXIETY
     Dosage: 1 DF, 1X/DAY
     Route: 048
     Dates: start: 20120702
  24. LACTULOSE. [Concomitant]
     Active Substance: LACTULOSE
     Dosage: 1 SCOOP BY MOUTH DAILY
     Route: 048
  25. PREDNISONE. [Concomitant]
     Active Substance: PREDNISONE
     Dosage: 60 MG, UNK
     Route: 048
  26. IBUPROFEN. [Concomitant]
     Active Substance: IBUPROFEN
     Dosage: 800 MG, 2X/DAY
     Route: 048
  27. LOVASTATIN. [Concomitant]
     Active Substance: LOVASTATIN
     Dosage: 20 MG, DAILY
     Route: 048

REACTIONS (7)
  - Emotional disorder [Not Recovered/Not Resolved]
  - Feeling abnormal [Unknown]
  - Drug dose omission [Unknown]
  - Drug dependence [Not Recovered/Not Resolved]
  - Drug ineffective [Not Recovered/Not Resolved]
  - Blood sodium decreased [Not Recovered/Not Resolved]
  - Intentional product misuse [Not Recovered/Not Resolved]

NARRATIVE: CASE EVENT DATE: 200705
